FAERS Safety Report 6316730-0 (Version None)
Quarter: 2009Q3

REPORT INFORMATION
  Report Type: 
  Country: None (occurrence: None)
  Receive Date: 20090820
  Receipt Date: 20090812
  Transmission Date: 20100115
  Serious: Yes (Life-Threatening, Hospitalization)
  Sender: FDA-Public Use
  Company Number: ES-ELI_LILLY_AND_COMPANY-ES200908002757

PATIENT
  Age: 71 Year
  Sex: Male

DRUGS (10)
  1. FORTEO [Suspect]
     Indication: OSTEOPOROSIS
     Dosage: 20 UG, DAILY (1/D)
     Route: 058
     Dates: start: 20090601, end: 20090811
  2. ADIRO [Concomitant]
  3. UNI MASDIL [Concomitant]
     Dosage: 200 MG, UNK
  4. SIMVASTATIN [Concomitant]
  5. RIFALDIN [Concomitant]
     Dosage: 600 MG, UNK
  6. OMEPRAZOLE [Concomitant]
  7. ASPIRIN [Concomitant]
  8. ENALAPRIL MALEATE [Concomitant]
  9. ACETAMINOPHEN [Concomitant]
     Dosage: 1 G, UNK
  10. CIPROFLOXACIN HCL [Concomitant]
     Dosage: 500 MG, DAILY (1/D)

REACTIONS (3)
  - COMA [None]
  - FALL [None]
  - LOSS OF CONSCIOUSNESS [None]
